FAERS Safety Report 5339148-6 (Version None)
Quarter: 2007Q2

REPORT INFORMATION
  Report Type: 
  Country: None (occurrence: None)
  Receive Date: 20070530
  Receipt Date: 20070521
  Transmission Date: 20071010
  Serious: Yes (Death)
  Sender: FDA-Public Use
  Company Number: GB-PFIZER INC-2007041594

PATIENT
  Sex: Female

DRUGS (3)
  1. IRINOTECAN HCL [Suspect]
     Indication: COLORECTAL CANCER
  2. FLUOROURACIL [Suspect]
     Indication: COLORECTAL CANCER
  3. BEVACIZUMAB [Suspect]
     Indication: COLORECTAL CANCER

REACTIONS (1)
  - DEATH [None]
